FAERS Safety Report 5484864-9 (Version None)
Quarter: 2007Q4

REPORT INFORMATION
  Report Type: 
  Country: None (occurrence: None)
  Receive Date: 20071010
  Receipt Date: 20070925
  Transmission Date: 20080405
  Serious: Yes (Hospitalization)
  Sender: FDA-Public Use
  Company Number: B0489666A

PATIENT
  Age: 62 Year
  Sex: Female

DRUGS (1)
  1. AMOXICILLIN TRIHYDRATE [Suspect]
     Indication: PYREXIA
     Dosage: ORAL
     Route: 048

REACTIONS (5)
  - EPSTEIN-BARR VIRUS TEST POSITIVE [None]
  - LEUKOCYTOSIS [None]
  - LINEAR IGA DISEASE [None]
  - MENINGITIS [None]
  - NEUTROPHILIA [None]
